FAERS Safety Report 13510222 (Version 3)
Quarter: 2017Q2

REPORT INFORMATION
  Report Type: Spontaneous
  Country: JP (occurrence: JP)
  Receive Date: 20170503
  Receipt Date: 20170609
  Transmission Date: 20170830
  Serious: Yes (Other)
  Sender: FDA-Public Use
  Company Number: JP-GILEAD-2017-0270829

PATIENT
  Age: 62 Year
  Sex: Male
  Weight: 63 kg

DRUGS (6)
  1. ATELEC [Concomitant]
     Active Substance: CILNIDIPINE
     Indication: HYPERTENSION
     Dosage: 10 MG, BID
     Route: 048
  2. LENDORMIN [Concomitant]
     Active Substance: BROTIZOLAM
  3. TAMSULOSIN [Concomitant]
     Active Substance: TAMSULOSIN
     Indication: DYSURIA
     Dosage: 0.2 MG, QD
     Route: 048
  4. LAXOBERON [Concomitant]
     Active Substance: SODIUM PICOSULFATE
  5. HARVONI [Suspect]
     Active Substance: LEDIPASVIR\SOFOSBUVIR
     Indication: CHRONIC HEPATITIS C
     Dosage: 1 DF, UNK
     Route: 048
     Dates: start: 20170316
  6. MAGMITT [Concomitant]
     Active Substance: MAGNESIUM OXIDE

REACTIONS (2)
  - Gastric cancer recurrent [Not Recovered/Not Resolved]
  - Metastases to lung [Unknown]

NARRATIVE: CASE EVENT DATE: 20170501
